FAERS Safety Report 16499449 (Version 3)
Quarter: 2024Q1

REPORT INFORMATION
  Report Type: Other
  Country: US (occurrence: None)
  Receive Date: 20190701
  Receipt Date: 20240216
  Transmission Date: 20240410
  Serious: Yes (Hospitalization)
  Sender: FDA-Public Use
  Company Number: US-ROCHE-2287129

PATIENT
  Age: 72 Year
  Sex: Female
  Weight: 54.48 kg

DRUGS (6)
  1. RITUXAN [Suspect]
     Active Substance: RITUXIMAB
     Indication: Relapsing multiple sclerosis
     Dosage: 2 INFUSE 600MG IV OF 6 MONTHS
     Route: 041
     Dates: start: 201806
  2. RITUXAN [Suspect]
     Active Substance: RITUXIMAB
     Indication: Multiple sclerosis
  3. OCREVUS [Suspect]
     Active Substance: OCRELIZUMAB
     Indication: Relapsing multiple sclerosis
     Route: 042
     Dates: start: 20190401
  4. LYRICA [Concomitant]
     Active Substance: PREGABALIN
     Indication: Neuralgia
     Dosage: 50 MG IN THE MORNING
     Route: 048
     Dates: start: 20190301
  5. LYRICA [Concomitant]
     Active Substance: PREGABALIN
     Route: 048
     Dates: start: 20190301
  6. CYMBALTA [Concomitant]
     Active Substance: DULOXETINE HYDROCHLORIDE
     Indication: Neuralgia
     Dosage: 60 MG IN THE MORNING
     Route: 048
     Dates: start: 20190301

REACTIONS (13)
  - Urinary tract infection [Recovered/Resolved]
  - Staphylococcal infection [Recovered/Resolved]
  - Viral infection [Recovered/Resolved]
  - Stomatitis [Recovered/Resolved]
  - Off label use [Unknown]
  - Pruritus [Not Recovered/Not Resolved]
  - Multiple sclerosis [Unknown]
  - Toothache [Recovering/Resolving]
  - White blood cell count decreased [Recovered/Resolved]
  - Cognitive disorder [Not Recovered/Not Resolved]
  - Hypoaesthesia [Unknown]
  - Paraesthesia [Not Recovered/Not Resolved]
  - Burning sensation [Not Recovered/Not Resolved]

NARRATIVE: CASE EVENT DATE: 20190401
